FAERS Safety Report 12687850 (Version 1)
Quarter: 2016Q3

REPORT INFORMATION
  Report Type: Spontaneous
  Country: US (occurrence: US)
  Receive Date: 20160826
  Receipt Date: 20160826
  Transmission Date: 20161109
  Serious: No
  Sender: FDA-Public Use
  Company Number: US-BEH-2016072212

PATIENT
  Sex: Female
  Weight: 72.56 kg

DRUGS (2)
  1. HIZENTRA [Suspect]
     Active Substance: HUMAN IMMUNOGLOBULIN G
     Indication: IMMUNODEFICIENCY COMMON VARIABLE
     Dosage: 14 G, QW
     Route: 058
  2. DIPHENHYDRAMINE OTC [Concomitant]
     Indication: PREMEDICATION
     Dosage: 25-50 MG 30 MIN PRIOR EACH INFUSION
     Route: 065

REACTIONS (1)
  - Infusion site nodule [Unknown]
